FAERS Safety Report 21327756 (Version 3)
Quarter: 2025Q3

REPORT INFORMATION
  Report Type: Spontaneous
  Country: EU (occurrence: EU)
  Receive Date: 20220913
  Receipt Date: 20250715
  Transmission Date: 20251021
  Serious: Yes (Hospitalization, Other)
  Sender: AUROBINDO
  Company Number: EU-EMA-20110818-raevhumanwt-142307204

PATIENT
  Age: 4 Year
  Sex: Male
  Weight: 20 kg

DRUGS (22)
  1. VALPROIC ACID [Interacting]
     Active Substance: VALPROIC ACID
     Indication: Epilepsy
     Dosage: 1 TOTAL, ONCE A DAY (30-50 MG/KG)
     Route: 042
  2. VALPROIC ACID [Interacting]
     Active Substance: VALPROIC ACID
     Indication: Epilepsy
     Dosage: 1 TOTAL, ONCE A DAY (45-80 MG/KG)
     Route: 042
     Dates: end: 20050206
  3. VALPROIC ACID [Interacting]
     Active Substance: VALPROIC ACID
     Indication: Partial seizures
     Dosage: 45 MILLIGRAM/KILOGRAM, ONCE A DAY
     Route: 042
  4. VALPROIC ACID [Interacting]
     Active Substance: VALPROIC ACID
     Indication: Generalised tonic-clonic seizure
     Dosage: 54 MILLIGRAM/KILOGRAM, ONCE A DAY
     Route: 042
  5. VALPROIC ACID [Interacting]
     Active Substance: VALPROIC ACID
     Dosage: 80 MILLIGRAM/KILOGRAM, ONCE A DAY
     Route: 042
  6. VALPROIC ACID [Interacting]
     Active Substance: VALPROIC ACID
     Dosage: 70 MILLIGRAM/KILOGRAM, ONCE A DAY
     Route: 042
  7. VALPROIC ACID [Interacting]
     Active Substance: VALPROIC ACID
     Dosage: 60 MILLIGRAM/KILOGRAM, ONCE A DAY
     Route: 042
  8. VALPROIC ACID [Interacting]
     Active Substance: VALPROIC ACID
     Dosage: 70 MILLIGRAM/KILOGRAM, ONCE A DAY
     Route: 042
  9. VALPROIC ACID [Interacting]
     Active Substance: VALPROIC ACID
     Dosage: 30 MILLIGRAM/KILOGRAM, ONCE A DAY
     Route: 042
  10. VALPROIC ACID [Interacting]
     Active Substance: VALPROIC ACID
     Dosage: 40 MILLIGRAM/KILOGRAM, ONCE A DAY
     Route: 042
  11. VALPROIC ACID [Interacting]
     Active Substance: VALPROIC ACID
     Dosage: 50 MILLIGRAM/KILOGRAM, ONCE A DAY
     Route: 042
  12. MEROPENEM [Suspect]
     Active Substance: MEROPENEM
     Indication: Infection
     Dosage: 120 MILLIGRAM/KILOGRAM, 3 TIMES A DAY
     Route: 065
  13. MEROPENEM [Suspect]
     Active Substance: MEROPENEM
     Indication: Bacterial infection
  14. MEROPENEM [Suspect]
     Active Substance: MEROPENEM
     Indication: Haemophilus infection
  15. MEROPENEM [Suspect]
     Active Substance: MEROPENEM
     Indication: Streptococcal infection
  16. CEFOTAXIME [Suspect]
     Active Substance: CEFOTAXIME SODIUM
     Indication: Bacterial infection
     Route: 065
     Dates: start: 200505, end: 20050601
  17. AMOXICILLIN\CLAVULANATE POTASSIUM [Concomitant]
     Active Substance: AMOXICILLIN\CLAVULANATE POTASSIUM
     Indication: Product used for unknown indication
     Route: 065
  18. DIAZEPAM [Concomitant]
     Active Substance: DIAZEPAM
     Indication: Seizure
     Route: 042
     Dates: start: 200505
  19. CLONAZEPAM [Concomitant]
     Active Substance: CLONAZEPAM
     Indication: Seizure
     Route: 065
     Dates: start: 200505
  20. CLONAZEPAM [Concomitant]
     Active Substance: CLONAZEPAM
     Route: 042
  21. MIDAZOLAM [Concomitant]
     Active Substance: MIDAZOLAM
     Indication: Seizure
     Route: 045
     Dates: start: 200505
  22. OXCARBAZEPINE [Concomitant]
     Active Substance: OXCARBAZEPINE
     Indication: Product used for unknown indication
     Route: 048

REACTIONS (7)
  - Drug interaction [Unknown]
  - Self-destructive behaviour [Unknown]
  - Bradycardia [Unknown]
  - Anticonvulsant drug level decreased [Unknown]
  - Irritability [Unknown]
  - Paresis [Unknown]
  - Rash [Unknown]

NARRATIVE: CASE EVENT DATE: 20050601
